FAERS Safety Report 21311124 (Version 1)
Quarter: 2022Q3

REPORT INFORMATION
  Report Type: Spontaneous
  Country: US (occurrence: None)
  Receive Date: 20220909
  Receipt Date: 20220909
  Transmission Date: 20221027
  Serious: No
  Sender: FDA-Public Use
  Company Number: US-ARIS GLOBAL-202201-0026

PATIENT
  Sex: Female

DRUGS (26)
  1. OXERVATE [Suspect]
     Active Substance: CENEGERMIN-BKBJ
     Indication: Neurotrophic keratopathy
     Route: 047
     Dates: start: 20211206
  2. LISINOPRIL [Concomitant]
     Active Substance: LISINOPRIL
  3. RITUXAN [Concomitant]
     Active Substance: RITUXIMAB
  4. REFRESH CELLUVISC [Concomitant]
     Active Substance: CARBOXYMETHYLCELLULOSE SODIUM
  5. ATORVASTATIN CALCIUM [Concomitant]
     Active Substance: ATORVASTATIN CALCIUM
  6. ASPIRIN [Concomitant]
     Active Substance: ASPIRIN
  7. DOXYCYCLINE HYCLATE [Concomitant]
     Active Substance: DOXYCYCLINE HYCLATE
  8. DULOXETINE HYDROCHLORIDE [Concomitant]
     Active Substance: DULOXETINE HYDROCHLORIDE
  9. MIRTAZAPINE [Concomitant]
     Active Substance: MIRTAZAPINE
  10. VALACYCLOVIR [Concomitant]
     Active Substance: VALACYCLOVIR HYDROCHLORIDE
  11. HYDROCODONE BITARTRATE AND ACETAMINOPHEN [Concomitant]
     Active Substance: ACETAMINOPHEN\HYDROCODONE BITARTRATE
  12. MORPHINE SULFATE [Concomitant]
     Active Substance: MORPHINE SULFATE
  13. METFORMIN HYDROCHLORIDE [Concomitant]
     Active Substance: METFORMIN HYDROCHLORIDE
  14. PREDNISONE [Concomitant]
     Active Substance: PREDNISONE
  15. CALCIUM\CHOLECALCIFEROL [Concomitant]
     Active Substance: CALCIUM\CHOLECALCIFEROL
  16. ALENDRONATE SODIUM [Concomitant]
     Active Substance: ALENDRONATE SODIUM
  17. OMEPRAZOLE\SODIUM BICARBONATE [Concomitant]
     Active Substance: OMEPRAZOLE\SODIUM BICARBONATE
  18. LASIX [Concomitant]
     Active Substance: FUROSEMIDE
  19. AMLODIPINE BESYLATE [Concomitant]
     Active Substance: AMLODIPINE BESYLATE
  20. PREDNISOLONE [Concomitant]
     Active Substance: PREDNISOLONE
  21. MAGNESIUM [Concomitant]
     Active Substance: MAGNESIUM
  22. METOPROLOL SUCCINATE [Concomitant]
     Active Substance: METOPROLOL SUCCINATE
  23. DEXAMETHASONE [Concomitant]
     Active Substance: DEXAMETHASONE
  24. NIACIN [Concomitant]
     Active Substance: NIACIN
  25. ONDANSETRON HYDROCHLORIDE [Concomitant]
     Active Substance: ONDANSETRON HYDROCHLORIDE
  26. POTASSIUM [Concomitant]
     Active Substance: POTASSIUM

REACTIONS (2)
  - Eye pain [Recovered/Resolved]
  - Eye swelling [Recovered/Resolved]
